FAERS Safety Report 7533783-2 (Version None)
Quarter: 2011Q2

REPORT INFORMATION
  Report Type: 
  Country: None (occurrence: None)
  Receive Date: 20110608
  Receipt Date: 20110527
  Transmission Date: 20111010
  Serious: Yes (Other)
  Sender: FDA-Public Use
  Company Number: US-AMGEN-USASP2011027967

PATIENT
  Age: 60 Year
  Sex: Male

DRUGS (3)
  1. XGEVA [Suspect]
     Indication: METASTASES TO BONE
     Dosage: 120 MG, Q4WK
     Dates: start: 20110401
  2. CARBOPLATIN [Concomitant]
     Dosage: UNK
  3. GEMZAR [Concomitant]
     Dosage: UNK

REACTIONS (1)
  - PERIORBITAL OEDEMA [None]
